FAERS Safety Report 16672383 (Version 1)
Quarter: 2019Q3

REPORT INFORMATION
  Report Type: Spontaneous
  Country: FR (occurrence: FR)
  Receive Date: 20190806
  Receipt Date: 20190806
  Transmission Date: 20191004
  Serious: Yes (Hospitalization)
  Sender: FDA-Public Use
  Company Number: FR-ACCORD-150388

PATIENT
  Age: 92 Year
  Sex: Male
  Weight: 91.1 kg

DRUGS (11)
  1. LASILIX [Suspect]
     Active Substance: FUROSEMIDE
     Indication: OEDEMA
     Dosage: STRENGTH: 40 MG, SCORED TABLET
     Route: 048
  2. TIAPRIDAL [Concomitant]
     Active Substance: TIAPRIDE HYDROCHLORIDE
  3. FUMAFER [Concomitant]
     Active Substance: FERROUS FUMARATE
  4. LOXEN [Concomitant]
  5. RAMIPRIL. [Suspect]
     Active Substance: RAMIPRIL
     Indication: CARDIOVASCULAR EVENT PROPHYLAXIS
     Route: 048
  6. LANTUS [Concomitant]
     Active Substance: INSULIN GLARGINE
  7. BISOCE [Concomitant]
     Active Substance: BISOPROLOL
  8. LANSOPRAZOLE. [Concomitant]
     Active Substance: LANSOPRAZOLE
  9. DEXERYL [Concomitant]
  10. PREGABALIN. [Concomitant]
     Active Substance: PREGABALIN
  11. DAFALGAN [Concomitant]
     Active Substance: ACETAMINOPHEN

REACTIONS (2)
  - Acute kidney injury [Recovering/Resolving]
  - Dehydration [Recovering/Resolving]

NARRATIVE: CASE EVENT DATE: 20190625
